FAERS Safety Report 26122639 (Version 2)
Quarter: 2025Q4

REPORT INFORMATION
  Report Type: Spontaneous
  Country: CN (occurrence: CN)
  Receive Date: 20251204
  Receipt Date: 20251208
  Transmission Date: 20260117
  Serious: Yes (Other)
  Sender: NOVARTIS
  Company Number: CN-002147023-NVSC2025CN185916

PATIENT
  Sex: Female

DRUGS (13)
  1. TOBRAMYCIN [Suspect]
     Active Substance: TOBRAMYCIN
     Indication: Foetal exposure during pregnancy
     Dosage: UNK (MATERNAL EXPOSURE DURING PREGNANCY)
     Route: 064
  2. LEVOTHYROXINE [Concomitant]
     Active Substance: LEVOTHYROXINE
     Indication: Foetal exposure during pregnancy
     Dosage: UNK (MATERNAL EXPOSURE DURING PREGNANCY)
     Route: 064
  3. PREDNISONE [Concomitant]
     Active Substance: PREDNISONE
     Indication: Foetal exposure during pregnancy
     Dosage: UNK (MATERNAL EXPOSURE DURING PREGNANCY)
     Route: 064
  4. HYDROXYCHLOROQUINE [Concomitant]
     Active Substance: HYDROXYCHLOROQUINE
     Indication: Foetal exposure during pregnancy
     Dosage: UNK (MATERNAL EXPOSURE DURING PREGNANCY)
     Route: 064
  5. CALCITRIOL [Concomitant]
     Active Substance: CALCITRIOL
     Indication: Foetal exposure during pregnancy
     Dosage: UNK (MATERNAL EXPOSURE DURING PREGNANCY)
     Route: 064
  6. CALCIUM CARBONATE [Concomitant]
     Active Substance: CALCIUM CARBONATE
     Indication: Foetal exposure during pregnancy
     Dosage: UNK (MATERNAL EXPOSURE DURING PREGNANCY)
     Route: 064
  7. OSELTAMIVIR [Concomitant]
     Active Substance: OSELTAMIVIR
     Indication: Foetal exposure during pregnancy
     Dosage: UNK (MATERNAL EXPOSURE DURING PREGNANCY)
     Route: 064
  8. CEFOPERAZONE [Concomitant]
     Active Substance: CEFOPERAZONE
     Indication: Foetal exposure during pregnancy
     Dosage: UNK (MATERNAL EXPOSURE DURING PREGNANCY)
     Route: 064
  9. Immunoglobulin [Concomitant]
     Indication: Foetal exposure during pregnancy
     Dosage: UNK (MATERNAL EXPOSURE DURING PREGNANCY)
     Route: 064
  10. METHYLPREDNISOLONE [Concomitant]
     Active Substance: METHYLPREDNISOLONE
     Indication: Foetal exposure during pregnancy
     Dosage: UNK (MATERNAL EXPOSURE DURING PREGNANCY)
     Route: 064
  11. SODIUM CHLORIDE [Concomitant]
     Active Substance: SODIUM CHLORIDE
     Indication: Foetal exposure during pregnancy
     Dosage: UNK (MATERNAL EXPOSURE DURING PREGNANCY:15 ML, Q6H, 15 ML (PER EACH RINSE))
     Route: 064
  12. LIDOCAINE [Concomitant]
     Active Substance: LIDOCAINE
     Indication: Foetal exposure during pregnancy
     Dosage: UNK (MATERNAL EXPOSURE DURING PREGNANCY: UNK UNK, TID )
     Route: 064
  13. ERYTHROMYCIN [Concomitant]
     Active Substance: ERYTHROMYCIN
     Indication: Foetal exposure during pregnancy
     Dosage: UNK (MATERNAL EXPOSURE DURING PREGNANCY: UNK (OINTMENT TO THE EYELIDS))
     Route: 064

REACTIONS (3)
  - Premature baby [Unknown]
  - Normal newborn [Unknown]
  - Foetal exposure during pregnancy [Unknown]
